FAERS Safety Report 25386995 (Version 1)
Quarter: 2025Q2

REPORT INFORMATION
  Report Type: Spontaneous
  Country: GB (occurrence: GB)
  Receive Date: 20250602
  Receipt Date: 20250602
  Transmission Date: 20250716
  Serious: Yes (Hospitalization, Other)
  Sender: ORGANON
  Company Number: None

PATIENT
  Age: 26 Year
  Sex: Female

DRUGS (3)
  1. FINASTERIDE [Suspect]
     Active Substance: FINASTERIDE
     Dosage: 5MG ONCE A DAY
  2. SERTRALINE [Concomitant]
     Active Substance: SERTRALINE HYDROCHLORIDE
  3. ZUCLOPENTHIXOL [Concomitant]
     Active Substance: ZUCLOPENTHIXOL

REACTIONS (1)
  - Aggression [Not Recovered/Not Resolved]
